FAERS Safety Report 4952185-6 (Version None)
Quarter: 2006Q1

REPORT INFORMATION
  Report Type: 
  Country: None (occurrence: None)
  Receive Date: 20060317
  Receipt Date: 20060309
  Transmission Date: 20060701
  Serious: Yes (Death, Life-Threatening, Hospitalization, Other)
  Sender: FDA-Public Use
  Company Number: 2006-03-0413

PATIENT
  Age: 74 Year
  Sex: Male
  Weight: 114 kg

DRUGS (3)
  1. EULEXIN [Suspect]
     Indication: PROSTATE CANCER
     Dosage: 750 MG QD ORAL
     Route: 048
     Dates: start: 20050913, end: 20051220
  2. GOSERELIN [Concomitant]
  3. ZOLADEX [Concomitant]

REACTIONS (17)
  - AORTIC ARTERIOSCLEROSIS [None]
  - ARTERIOSCLEROSIS CORONARY ARTERY [None]
  - BLOOD PRESSURE INADEQUATELY CONTROLLED [None]
  - CIRCULATORY COLLAPSE [None]
  - DIALYSIS [None]
  - DIZZINESS [None]
  - EMPHYSEMA [None]
  - HEPATIC FIBROSIS [None]
  - HEPATIC NECROSIS [None]
  - HEPATITIS TOXIC [None]
  - HEPATORENAL SYNDROME [None]
  - HYPERPLASIA [None]
  - MITRAL VALVE DISEASE [None]
  - PANCREATITIS ACUTE [None]
  - PULMONARY CONGESTION [None]
  - PULMONARY OEDEMA [None]
  - SPLEEN DISORDER [None]
